FAERS Safety Report 6676200-7 (Version None)
Quarter: 2010Q2

REPORT INFORMATION
  Report Type: 
  Country: None (occurrence: None)
  Receive Date: 20100412
  Receipt Date: 20100407
  Transmission Date: 20101027
  Serious: Yes (Disabling)
  Sender: FDA-Public Use
  Company Number: GB-ASTRAZENECA-2010SE15174

PATIENT
  Age: 69 Year
  Sex: Female

DRUGS (5)
  1. FASLODEX [Suspect]
     Indication: BREAST CANCER METASTATIC
     Dosage: 250 MG
     Route: 030
     Dates: start: 20100312, end: 20100312
  2. DEXAMETHASONE [Concomitant]
     Dosage: 2 MG
     Route: 048
  3. FRAGMIN [Concomitant]
     Indication: DEEP VEIN THROMBOSIS
     Dosage: 18000 IU
     Route: 058
     Dates: start: 20100315
  4. FUROSEMIDE [Concomitant]
     Indication: HYPERTENSION
     Dosage: 40 MG
     Route: 048
  5. SPIRONOLACTONE [Concomitant]
     Dosage: 50 MG
     Route: 048

REACTIONS (3)
  - INJECTION SITE REACTION [None]
  - NAUSEA [None]
  - PRURITUS GENERALISED [None]
